FAERS Safety Report 15478309 (Version 2)
Quarter: 2018Q4

REPORT INFORMATION
  Report Type: Spontaneous
  Country: US (occurrence: US)
  Receive Date: 20181009
  Receipt Date: 20181205
  Transmission Date: 20190205
  Serious: No
  Sender: FDA-Public Use
  Company Number: US-SA-2018SA272559

PATIENT
  Age: 49 Year
  Sex: Female

DRUGS (7)
  1. KEVZARA [Suspect]
     Active Substance: SARILUMAB
     Indication: RHEUMATOID ARTHRITIS
     Dosage: 200 MG, QOW
     Route: 058
     Dates: start: 20180901, end: 20181028
  2. PREDNISONE. [Concomitant]
     Active Substance: PREDNISONE
     Dosage: 7.5
  3. XELJANZ XR [Concomitant]
     Active Substance: TOFACITINIB CITRATE
  4. VIIBRYD [Concomitant]
     Active Substance: VILAZODONE HYDROCHLORIDE
     Dosage: 30
  5. VALACYCLOVIR [VALACICLOVIR] [Concomitant]
     Dosage: 500
  6. LYRICA [Concomitant]
     Active Substance: PREGABALIN
     Dosage: 150
  7. BUSPAR [Concomitant]
     Active Substance: BUSPIRONE HYDROCHLORIDE
     Dosage: 90

REACTIONS (12)
  - Injection site exfoliation [Not Recovered/Not Resolved]
  - Pain [Unknown]
  - Injection site erythema [Not Recovered/Not Resolved]
  - Feelings of worthlessness [Unknown]
  - Candida infection [Unknown]
  - Influenza like illness [Not Recovered/Not Resolved]
  - Feeling abnormal [Unknown]
  - Dysphonia [Unknown]
  - Drug ineffective [Unknown]
  - Nasal congestion [Unknown]
  - Tooth discolouration [Unknown]
  - Injection site swelling [Not Recovered/Not Resolved]

NARRATIVE: CASE EVENT DATE: 20180902
